FAERS Safety Report 20152344 (Version 6)
Quarter: 2022Q3

REPORT INFORMATION
  Report Type: Report from Study
  Country: CN (occurrence: None)
  Receive Date: 20211206
  Receipt Date: 20220705
  Transmission Date: 20221027
  Serious: Yes (Hospitalization)
  Sender: FDA-Public Use
  Company Number: CN-ROCHE-2965900

PATIENT
  Age: 71 Year
  Sex: Male
  Weight: 61 kg

DRUGS (38)
  1. PACLITAXEL [Suspect]
     Active Substance: PACLITAXEL
     Indication: Oesophageal squamous cell carcinoma metastatic
     Dosage: START DATE OF MOST RECENT DOSE OF STUDY DRUG 297 MG PRIOR TO AE/SAE: 11/NOV/2021
     Route: 042
     Dates: start: 20211111
  2. CISPLATIN [Suspect]
     Active Substance: CISPLATIN
     Indication: Oesophageal squamous cell carcinoma metastatic
     Dosage: START DATE OF MOST RECENT DOSE OF STUDY DRUG 100 MG PRIOR TO AE/SAE: 11/NOV/2021
     Route: 042
     Dates: start: 20211111
  3. TIRAGOLUMAB [Suspect]
     Active Substance: TIRAGOLUMAB
     Indication: Oesophageal squamous cell carcinoma metastatic
     Dosage: START DATE OF MOST RECENT DOSE OF STUDY DRUG PRIOR TO AE/SAE: 11/NOV/2021
     Route: 042
     Dates: start: 20211111
  4. ATEZOLIZUMAB [Suspect]
     Active Substance: ATEZOLIZUMAB
     Indication: Oesophageal squamous cell carcinoma metastatic
     Dosage: ON 11/NOV/2021, HE RECEIVED MOST RECENT DOSE PRIOR AE AND SAE
     Route: 042
     Dates: start: 20211111
  5. DEXTROSE\SODIUM CHLORIDE [Concomitant]
     Active Substance: DEXTROSE\SODIUM CHLORIDE
     Dates: start: 20211110, end: 20211110
  6. DEXTROSE\SODIUM CHLORIDE [Concomitant]
     Active Substance: DEXTROSE\SODIUM CHLORIDE
     Dates: start: 20211112, end: 20211112
  7. DEXTROSE\SODIUM CHLORIDE [Concomitant]
     Active Substance: DEXTROSE\SODIUM CHLORIDE
     Dates: start: 20211201, end: 20211201
  8. DEXTROSE\SODIUM CHLORIDE [Concomitant]
     Active Substance: DEXTROSE\SODIUM CHLORIDE
     Dates: start: 20211203, end: 20211203
  9. SODIUM LACTATE RINGER^S [Concomitant]
     Dates: start: 20211110, end: 20211110
  10. SODIUM LACTATE RINGER^S [Concomitant]
     Dates: start: 20211112, end: 20211112
  11. SODIUM LACTATE RINGER^S [Concomitant]
     Dates: start: 20211201, end: 20211201
  12. SODIUM LACTATE RINGER^S [Concomitant]
     Dates: start: 20211203, end: 20211203
  13. SODIUM LACTATE RINGER^S [Concomitant]
     Dates: start: 20211124, end: 20211124
  14. SODIUM CHLORIDE [Concomitant]
     Active Substance: SODIUM CHLORIDE
     Dates: start: 20211110, end: 20211110
  15. SODIUM CHLORIDE [Concomitant]
     Active Substance: SODIUM CHLORIDE
     Dates: start: 20211112, end: 20211112
  16. SODIUM CHLORIDE [Concomitant]
     Active Substance: SODIUM CHLORIDE
     Dates: start: 20211201, end: 20211201
  17. SODIUM CHLORIDE [Concomitant]
     Active Substance: SODIUM CHLORIDE
     Dates: start: 20211203, end: 20211203
  18. POTASSIUM CHLORIDE [Concomitant]
     Active Substance: POTASSIUM CHLORIDE
     Dates: start: 20211110, end: 20211112
  19. POTASSIUM CHLORIDE [Concomitant]
     Active Substance: POTASSIUM CHLORIDE
     Dates: start: 20211201, end: 20211203
  20. POTASSIUM CHLORIDE [Concomitant]
     Active Substance: POTASSIUM CHLORIDE
     Dates: start: 20211123, end: 20211123
  21. DEXTROSE [Concomitant]
     Active Substance: DEXTROSE
     Dates: start: 20211110, end: 20211112
  22. DEXTROSE [Concomitant]
     Active Substance: DEXTROSE
     Dates: start: 20211201, end: 20211203
  23. DEXTROSE [Concomitant]
     Active Substance: DEXTROSE
     Dates: start: 20211123, end: 20211123
  24. FUROSEMIDE [Concomitant]
     Active Substance: FUROSEMIDE
     Route: 042
     Dates: start: 20211111, end: 20211112
  25. FUROSEMIDE [Concomitant]
     Active Substance: FUROSEMIDE
     Route: 042
     Dates: start: 20211201, end: 20211203
  26. LANSOPRAZOLE [Concomitant]
     Active Substance: LANSOPRAZOLE
     Dates: start: 20211111, end: 20211112
  27. PALONOSETRON HYDROCHLORIDE [Concomitant]
     Active Substance: PALONOSETRON HYDROCHLORIDE
     Dates: start: 20211111, end: 20211111
  28. PALONOSETRON HYDROCHLORIDE [Concomitant]
     Active Substance: PALONOSETRON HYDROCHLORIDE
     Dates: start: 20211202, end: 20211202
  29. FOSAPREPITANT DIMEGLUMINE [Concomitant]
     Active Substance: FOSAPREPITANT DIMEGLUMINE
     Dates: start: 20211111, end: 20211111
  30. FOSAPREPITANT DIMEGLUMINE [Concomitant]
     Active Substance: FOSAPREPITANT DIMEGLUMINE
     Dates: start: 20211202, end: 20211202
  31. DEXAMETHASONE SODIUM PHOSPHATE [Concomitant]
     Active Substance: DEXAMETHASONE SODIUM PHOSPHATE
     Route: 042
     Dates: start: 20211111, end: 20211111
  32. DEXAMETHASONE SODIUM PHOSPHATE [Concomitant]
     Active Substance: DEXAMETHASONE SODIUM PHOSPHATE
     Route: 042
     Dates: start: 20211202, end: 20211202
  33. DIPHENHYDRAMINE [Concomitant]
     Active Substance: DIPHENHYDRAMINE
     Dates: start: 20211111, end: 20211111
  34. DIPHENHYDRAMINE [Concomitant]
     Active Substance: DIPHENHYDRAMINE
     Dates: start: 20211202, end: 20211202
  35. CIMETIDINE [Concomitant]
     Active Substance: CIMETIDINE
     Dates: start: 20211111, end: 20211111
  36. CIMETIDINE [Concomitant]
     Active Substance: CIMETIDINE
     Dates: start: 20211202, end: 20211202
  37. PEGYLATED RECOMBINANT HUMAN GRANULOCYTE COLONY-STIMULATING FACTOR [Concomitant]
     Dates: start: 20211205, end: 20211205
  38. IBUPROFEN [Concomitant]
     Active Substance: IBUPROFEN
     Route: 048
     Dates: start: 20211123, end: 20211124

REACTIONS (1)
  - Febrile neutropenia [Recovered/Resolved]

NARRATIVE: CASE EVENT DATE: 20211123
